FAERS Safety Report 23881391 (Version 1)
Quarter: 2024Q2

REPORT INFORMATION
  Report Type: Spontaneous
  Country: US (occurrence: US)
  Receive Date: 20240521
  Receipt Date: 20240521
  Transmission Date: 20240715
  Serious: No
  Sender: FDA-Public Use
  Company Number: US-NOVOPROD-1192155

PATIENT
  Age: 6 Year
  Sex: Female

DRUGS (1)
  1. NORDITROPIN [Suspect]
     Active Substance: SOMATROPIN
     Indication: Product used for unknown indication
     Dosage: 0.7 MG
     Route: 058
     Dates: start: 20240209, end: 20240215

REACTIONS (1)
  - Swelling face [Recovered/Resolved]
